FAERS Safety Report 20676254 (Version 1)
Quarter: 2022Q2

REPORT INFORMATION
  Report Type: Report from Study
  Country: US (occurrence: US)
  Receive Date: 20220405
  Receipt Date: 20220405
  Transmission Date: 20220721
  Serious: Yes (Other)
  Sender: FDA-Public Use
  Company Number: US-TAKEDA-2022TUS021405

PATIENT
  Age: 13 Year
  Sex: Male

DRUGS (1)
  1. RECOMBINATE [Suspect]
     Active Substance: ANTIHEMOPHILIC FACTOR, HUMAN RECOMBINANT
     Indication: Factor VIII deficiency
     Dosage: 12 INTERNATIONAL UNIT/KILOGRAM, 2 TIMES A WEEK
     Route: 065
     Dates: start: 2020

REACTIONS (2)
  - Haemorrhage [Unknown]
  - Drug ineffective [Unknown]
